FAERS Safety Report 14631043 (Version 11)
Quarter: 2019Q4

REPORT INFORMATION
  Report Type: Report from Study
  Country: CA (occurrence: CA)
  Receive Date: 20180313
  Receipt Date: 20191030
  Transmission Date: 20200122
  Serious: Yes (Other)
  Sender: FDA-Public Use
  Company Number: CA-HLSUS-2018-CA-000188

PATIENT
  Age: 32 Year
  Sex: Female
  Weight: 59 kg

DRUGS (5)
  1. OLANZAPINE. [Concomitant]
     Active Substance: OLANZAPINE
  2. RISPERIDONE. [Concomitant]
     Active Substance: RISPERIDONE
  3. MELATONIN [Concomitant]
     Active Substance: MELATONIN
  4. CLOZARIL [Suspect]
     Active Substance: CLOZAPINE
     Dosage: 175MG AT BEDTIME
     Route: 048
     Dates: start: 20180108
  5. WELLBUTRIN [Concomitant]
     Active Substance: BUPROPION HYDROCHLORIDE
     Dosage: 200 MG SR QAM

REACTIONS (23)
  - Sinus tachycardia [Recovered/Resolved]
  - Sedation [Unknown]
  - Bundle branch block right [Unknown]
  - Microcytosis [Recovered/Resolved]
  - Red blood cell elliptocytes present [Recovered/Resolved]
  - Electrocardiogram PR shortened [Unknown]
  - Haematocrit decreased [Unknown]
  - Mean cell volume decreased [Unknown]
  - Red cell distribution width increased [Unknown]
  - Haemoglobin decreased [Unknown]
  - Aspartate aminotransferase increased [Unknown]
  - Gamma-glutamyltransferase increased [Unknown]
  - Fatigue [Unknown]
  - Electrocardiogram QT prolonged [Unknown]
  - Defect conduction intraventricular [Unknown]
  - Endometrial adenocarcinoma [Unknown]
  - Electrocardiogram ST-T change [Unknown]
  - Mean cell haemoglobin [Unknown]
  - Blood lactate dehydrogenase increased [Unknown]
  - Electrocardiogram QT prolonged [Unknown]
  - Alanine aminotransferase increased [Unknown]
  - Electrocardiogram T wave abnormal [Unknown]
  - Ventricular extrasystoles [Unknown]

NARRATIVE: CASE EVENT DATE: 20180111
